FAERS Safety Report 9641135 (Version 3)
Quarter: 2013Q4

REPORT INFORMATION
  Report Type: Not Available
  Country: US (occurrence: US)
  Receive Date: 20131023
  Receipt Date: 20131216
  Transmission Date: 20140711
  Serious: Yes (Other)
  Sender: FDA-Public Use
  Company Number: US-VIROPHARMA INCORPORATED-20131010CINRY5149

PATIENT
  Age: 65 Year
  Sex: Male
  Weight: 103.51 kg

DRUGS (6)
  1. CINRYZE (C1 ESTERASE INHIBITOR (HUMAN)) [Suspect]
     Indication: HEREDITARY ANGIOEDEMA
     Route: 042
     Dates: start: 20120702
  2. CINRYZE (C1 ESTERASE INHIBITOR (HUMAN)) [Suspect]
     Indication: PROPHYLAXIS
  3. DANAZOL [Concomitant]
     Indication: HEREDITARY ANGIOEDEMA
     Dosage: UNKNOWN
     Route: 065
  4. PREDNISONE [Concomitant]
     Indication: HEREDITARY ANGIOEDEMA
     Dosage: UNKNOWN
     Route: 065
  5. FIRAZYR [Concomitant]
     Indication: HEREDITARY ANGIOEDEMA
     Dosage: 30 MG EVERY 6 HOURS AS NEEDED
     Route: 058
  6. BERINERT [Concomitant]
     Indication: HEREDITARY ANGIOEDEMA
     Dosage: 2400 UNITS AS NEEDED (4ML/MIN)
     Route: 042

REACTIONS (6)
  - Deep vein thrombosis [Recovered/Resolved]
  - Bone neoplasm [Unknown]
  - Mass [Unknown]
  - Joint swelling [Not Recovered/Not Resolved]
  - Arthralgia [Not Recovered/Not Resolved]
  - Hereditary angioedema [Unknown]
